FAERS Safety Report 12797057 (Version 2)
Quarter: 2016Q4

REPORT INFORMATION
  Report Type: Spontaneous
  Country: US (occurrence: US)
  Receive Date: 20160929
  Receipt Date: 20161103
  Transmission Date: 20170207
  Serious: No
  Sender: FDA-Public Use
  Company Number: US-GILEAD-2016-0235319

PATIENT
  Age: 57 Year
  Sex: Female

DRUGS (2)
  1. EPCLUSA [Suspect]
     Active Substance: SOFOSBUVIR\VELPATASVIR
     Indication: CHRONIC HEPATITIS C
     Dosage: UNK
     Route: 065
     Dates: start: 20160822
  2. LEXAPRO [Concomitant]
     Active Substance: ESCITALOPRAM OXALATE
     Dosage: 10 MG, QD

REACTIONS (1)
  - Hepatitis C virus test positive [Unknown]
